FAERS Safety Report 21409207 (Version 2)
Quarter: 2022Q4

REPORT INFORMATION
  Report Type: Report from Study
  Country: CA (occurrence: CA)
  Receive Date: 20221004
  Receipt Date: 20221025
  Transmission Date: 20230113
  Serious: Yes (Other)
  Sender: FDA-Public Use
  Company Number: CA-ABBVIE-4133828

PATIENT
  Sex: Male

DRUGS (2)
  1. HUMIRA [Suspect]
     Active Substance: ADALIMUMAB
     Indication: Crohn^s disease
     Route: 058
     Dates: start: 20140505, end: 2022
  2. HUMIRA [Suspect]
     Active Substance: ADALIMUMAB
     Route: 058
     Dates: start: 202209

REACTIONS (9)
  - Ureteric obstruction [Unknown]
  - Constipation [Unknown]
  - Illness [Unknown]
  - Nephrolithiasis [Unknown]
  - Ileus paralytic [Recovered/Resolved]
  - Nephrolithiasis [Unknown]
  - Kidney rupture [Unknown]
  - Abdominal distension [Unknown]
  - Faecal calprotectin increased [Unknown]

NARRATIVE: CASE EVENT DATE: 20220101
